FAERS Safety Report 4868403-9 (Version None)
Quarter: 2005Q4

REPORT INFORMATION
  Report Type: 
  Country: None (occurrence: None)
  Receive Date: 20051229
  Receipt Date: 20051222
  Transmission Date: 20060501
  Serious: Yes (Hospitalization)
  Sender: FDA-Public Use
  Company Number: PT-GLAXOSMITHKLINE-B0404773A

PATIENT
  Sex: Male

DRUGS (5)
  1. FOSAMPRENAVIR [Suspect]
     Indication: HIV INFECTION
     Route: 048
     Dates: start: 20050913
  2. LAMIVUDINE [Concomitant]
  3. TENOFOVIR [Concomitant]
     Route: 065
  4. ZYPREXA [Concomitant]
  5. VALPROATE SODIUM [Concomitant]

REACTIONS (1)
  - PSYCHOTIC DISORDER [None]
